FAERS Safety Report 11415188 (Version 1)
Quarter: 2015Q3

REPORT INFORMATION
  Report Type: Spontaneous
  Country: US (occurrence: None)
  Receive Date: 20150824
  Receipt Date: 20150824
  Transmission Date: 20151125
  Serious: Yes (Life-Threatening, Hospitalization, Disabling)
  Sender: FDA-Public Use
  Company Number: None

PATIENT
  Age: 67 Year
  Sex: Female
  Weight: 85.73 kg

DRUGS (14)
  1. MULTIVITAMIN [Concomitant]
     Active Substance: VITAMINS
  2. VITAMIN C [Concomitant]
     Active Substance: ASCORBIC ACID
  3. ALPRAZOLAM. [Concomitant]
     Active Substance: ALPRAZOLAM
  4. DULOXETINE. [Concomitant]
     Active Substance: DULOXETINE
  5. OXYCODONE [Concomitant]
     Active Substance: OXYCODONE
  6. POTASSIUM CHLORIDE. [Concomitant]
     Active Substance: POTASSIUM CHLORIDE
  7. CALCIUM [Concomitant]
     Active Substance: CALCIUM
  8. CPAP [Concomitant]
     Active Substance: DEVICE
  9. VITAMIN D [Concomitant]
     Active Substance: CHOLECALCIFEROL
  10. FOLIC ACID. [Concomitant]
     Active Substance: FOLIC ACID
  11. VITAMIN B12 [Concomitant]
     Active Substance: CYANOCOBALAMIN
  12. RECLAST [Suspect]
     Active Substance: ZOLEDRONIC ACID
     Indication: OSTEOPOROSIS
     Dosage: ONE INFUSION YEARLY BY INJECTION
     Dates: start: 201212, end: 20140501
  13. QUETIAPINE [Concomitant]
     Active Substance: QUETIAPINE
  14. IRON [Concomitant]
     Active Substance: IRON

REACTIONS (9)
  - Venous haemorrhage [None]
  - Blood iron decreased [None]
  - Gastrointestinal haemorrhage [None]
  - Blood calcium decreased [None]
  - Tooth disorder [None]
  - Renal disorder [None]
  - Bone pain [None]
  - Blood potassium decreased [None]
  - Arthralgia [None]

NARRATIVE: CASE EVENT DATE: 20140501
